FAERS Safety Report 7645875-8 (Version None)
Quarter: 2011Q3

REPORT INFORMATION
  Report Type: 
  Country: None (occurrence: None)
  Receive Date: 20110729
  Receipt Date: 20110715
  Transmission Date: 20111222
  Serious: Yes (Hospitalization, Other)
  Sender: FDA-Public Use
  Company Number: US-BAXTER-2011BH022435

PATIENT
  Sex: Male

DRUGS (1)
  1. SEVOFLURANE [Suspect]
     Indication: PRODUCT USED FOR UNKNOWN INDICATION
     Route: 065
     Dates: start: 20080813, end: 20081106

REACTIONS (12)
  - THYROID DISORDER [None]
  - DEPRESSION [None]
  - AMNESIA [None]
  - NAUSEA [None]
  - PARAESTHESIA [None]
  - ANXIETY [None]
  - OCCUPATIONAL EXPOSURE TO DRUG [None]
  - DIZZINESS [None]
  - DISTURBANCE IN ATTENTION [None]
  - TREMOR [None]
  - GENERAL PHYSICAL HEALTH DETERIORATION [None]
  - MUSCLE TWITCHING [None]
